FAERS Safety Report 18444175 (Version 1)
Quarter: 2020Q4

REPORT INFORMATION
  Report Type: Report from Study
  Country: BR (occurrence: BR)
  Receive Date: 20201030
  Receipt Date: 20201030
  Transmission Date: 20210114
  Serious: Yes (Other)
  Sender: FDA-Public Use
  Company Number: PHHY2019BR131786

PATIENT
  Age: 43 Year
  Sex: Male

DRUGS (4)
  1. COSENTYX [Suspect]
     Active Substance: SECUKINUMAB
     Indication: PSORIATIC ARTHROPATHY
     Dosage: 150 MG, UNK
     Route: 065
     Dates: start: 20180730
  2. COSENTYX [Suspect]
     Active Substance: SECUKINUMAB
     Dosage: 300 MG, UNKNOWN
     Route: 065
  3. COSENTYX [Suspect]
     Active Substance: SECUKINUMAB
     Dosage: UNK
     Route: 065
     Dates: start: 20190801
  4. COSENTYX [Suspect]
     Active Substance: SECUKINUMAB
     Dosage: UNK
     Route: 065
     Dates: start: 20201006

REACTIONS (12)
  - Skin lesion [Not Recovered/Not Resolved]
  - Rheumatic disorder [Unknown]
  - Device malfunction [Unknown]
  - Device leakage [Unknown]
  - Accidental exposure to product [Unknown]
  - Drug ineffective [Unknown]
  - Macule [Unknown]
  - Psoriasis [Unknown]
  - Arthralgia [Unknown]
  - Oesophageal infection [Not Recovered/Not Resolved]
  - Skin abrasion [Unknown]
  - Incorrect dose administered [Unknown]

NARRATIVE: CASE EVENT DATE: 20191101
